FAERS Safety Report 12427095 (Version 2)
Quarter: 2016Q3

REPORT INFORMATION
  Report Type: Spontaneous
  Country: US (occurrence: US)
  Receive Date: 20160601
  Receipt Date: 20160922
  Transmission Date: 20161109
  Serious: No
  Sender: FDA-Public Use
  Company Number: US-ELI_LILLY_AND_COMPANY-US201605010948

PATIENT
  Age: 72 Year
  Sex: Female

DRUGS (7)
  1. INSULIN HUMAN [Suspect]
     Active Substance: INSULIN HUMAN
     Dosage: 75 U, QD
     Route: 065
     Dates: start: 2011
  2. HUMULIN R U-500 [Suspect]
     Active Substance: INSULIN HUMAN
     Indication: TYPE 2 DIABETES MELLITUS
     Dosage: 75 U, QD
     Route: 065
  3. INSULIN HUMAN [Suspect]
     Active Substance: INSULIN HUMAN
     Dosage: 40 U, EACH EVENING
     Route: 065
     Dates: start: 2011
  4. INSULIN HUMAN [Suspect]
     Active Substance: INSULIN HUMAN
     Dosage: 75 U, QD
     Route: 065
  5. INSULIN HUMAN [Suspect]
     Active Substance: INSULIN HUMAN
     Indication: TYPE 2 DIABETES MELLITUS
     Dosage: 40 U, EACH MORNING
     Route: 065
     Dates: start: 2011
  6. INSULIN HUMAN [Suspect]
     Active Substance: INSULIN HUMAN
     Dosage: 40 U, EACH MORNING
     Route: 065
  7. INSULIN HUMAN [Suspect]
     Active Substance: INSULIN HUMAN
     Dosage: 40 U, EACH EVENING
     Route: 065

REACTIONS (5)
  - Blood glucose increased [Not Recovered/Not Resolved]
  - Blood glucose fluctuation [Not Recovered/Not Resolved]
  - Blood glucose increased [Not Recovered/Not Resolved]
  - Expired product administered [Recovered/Resolved]
  - Blood glucose increased [Not Recovered/Not Resolved]

NARRATIVE: CASE EVENT DATE: 2014
